FAERS Safety Report 7082517-7 (Version None)
Quarter: 2010Q4

REPORT INFORMATION
  Report Type: 
  Country: None (occurrence: None)
  Receive Date: 20101104
  Receipt Date: 20101029
  Transmission Date: 20110411
  Serious: No
  Sender: FDA-Public Use
  Company Number: US-ROXANE LABORATORIES, INC.-2010-RO-01178RO

PATIENT
  Sex: Female

DRUGS (2)
  1. METHADONE [Suspect]
     Indication: ABDOMINAL PAIN
     Dosage: 60 MG
     Route: 048
     Dates: start: 20100611
  2. PERCOCET [Concomitant]

REACTIONS (1)
  - HYPERHIDROSIS [None]
